FAERS Safety Report 8273990-7 (Version None)
Quarter: 2012Q2

REPORT INFORMATION
  Report Type: 
  Country: None (occurrence: None)
  Receive Date: 20120411
  Receipt Date: 20120403
  Transmission Date: 20120825
  Serious: Yes (Hospitalization)
  Sender: FDA-Public Use
  Company Number: US-BAYER-2012-002930

PATIENT
  Age: 31 Year
  Sex: Female
  Weight: 84.807 kg

DRUGS (5)
  1. YASMIN [Suspect]
     Dosage: UNK
     Dates: start: 20030101, end: 20110101
  2. OMEPRAZOLE [Concomitant]
     Dosage: 20 MG, BID
     Route: 048
     Dates: start: 20091016
  3. PHENOBARBITAL AND BELLADONNA [ATROP SULF,HYOSCINE HBR,HYOSCYAM HBR [Concomitant]
     Indication: ABDOMINAL PAIN
     Dosage: 16.2 MG, PRN
     Route: 048
     Dates: start: 20091016
  4. YASMIN [Suspect]
     Indication: MENSTRUAL CYCLE MANAGEMENT
     Dosage: UNK
     Dates: start: 20030101, end: 20100101
  5. ACETAMINOPHEN AND HYDROCODONE BITARTRATE [Concomitant]
     Indication: PAIN
     Dosage: UNK UNK, PRN

REACTIONS (14)
  - VOMITING [None]
  - QUALITY OF LIFE DECREASED [None]
  - PSYCHOLOGICAL TRAUMA [None]
  - CHOLELITHIASIS [None]
  - ANXIETY [None]
  - GASTROINTESTINAL DISORDER [None]
  - FEAR [None]
  - PAIN [None]
  - ANHEDONIA [None]
  - INJURY [None]
  - BILIARY COLIC [None]
  - EMOTIONAL DISTRESS [None]
  - NAUSEA [None]
  - PROCEDURAL PAIN [None]
